FAERS Safety Report 14166869 (Version 1)
Quarter: 2017Q4

REPORT INFORMATION
  Report Type: Spontaneous
  Country: JP (occurrence: JP)
  Receive Date: 20171107
  Receipt Date: 20171107
  Transmission Date: 20180321
  Serious: Yes (Other)
  Sender: FDA-Public Use
  Company Number: JP-PFIZER INC-2017470184

PATIENT

DRUGS (1)
  1. ZITHROMAC SR 2G [Suspect]
     Active Substance: AZITHROMYCIN MONOHYDRATE
     Route: 048

REACTIONS (1)
  - Choking [Unknown]
